FAERS Safety Report 5065194-6 (Version None)
Quarter: 2006Q3

REPORT INFORMATION
  Report Type: 
  Country: None (occurrence: None)
  Receive Date: 20060703
  Receipt Date: 20051123
  Transmission Date: 20061208
  Serious: Yes (Other)
  Sender: FDA-Public Use
  Company Number: 2005-0008339

PATIENT
  Sex: Male
  Weight: 77.1115 kg

DRUGS (6)
  1. VIREAD [Suspect]
     Indication: HIV INFECTION
     Dosage: SEE IMAGE
     Route: 048
     Dates: end: 20050501
  2. VIREAD [Suspect]
     Indication: HIV INFECTION
     Dosage: SEE IMAGE
     Route: 048
     Dates: start: 20060312
  3. DIDANOSINE [Suspect]
     Indication: HIV INFECTION
     Dosage: SEE IMAGE
  4. VIRAMUNE [Concomitant]
  5. GLUCOPHAGE (METFORMIN/00082701) [Concomitant]
  6. ZESTORETIC(PRINZIDE/00977901/) [Concomitant]

REACTIONS (6)
  - ACQUIRED OESOPHAGEAL WEB [None]
  - ALANINE AMINOTRANSFERASE INCREASED [None]
  - ASPARTATE AMINOTRANSFERASE INCREASED [None]
  - LACTIC ACIDOSIS [None]
  - NEPHROPATHY TOXIC [None]
  - WEIGHT DECREASED [None]
